FAERS Safety Report 5901925-8 (Version None)
Quarter: 2008Q3

REPORT INFORMATION
  Report Type: 
  Country: None (occurrence: None)
  Receive Date: 20080929
  Receipt Date: 20080305
  Transmission Date: 20090109
  Serious: No
  Sender: FDA-Public Use
  Company Number: US-BRISTOL-MYERS SQUIBB COMPANY-14103626

PATIENT
  Age: 63 Year
  Sex: Female
  Weight: 74 kg

DRUGS (3)
  1. BUSPAR [Suspect]
     Indication: ANXIETY
     Dosage: DOSE INCREASED BY 15 MG PER DAY PER PHYSICIANS ADVICE.
  2. LUMIGAN [Concomitant]
  3. PRILOSEC [Concomitant]

REACTIONS (1)
  - ANXIETY [None]
